FAERS Safety Report 5293536-5 (Version None)
Quarter: 2007Q2

REPORT INFORMATION
  Report Type: 
  Country: None (occurrence: None)
  Receive Date: 20070411
  Receipt Date: 20070402
  Transmission Date: 20071010
  Serious: Yes (Disabling)
  Sender: FDA-Public Use
  Company Number: GB-GLAXOSMITHKLINE-B0465509A

PATIENT
  Age: 26 Year
  Sex: Female

DRUGS (3)
  1. BUPROPION HCL [Suspect]
     Route: 048
     Dates: start: 20070312, end: 20070316
  2. AMISULPRIDE [Concomitant]
     Route: 048
  3. MIRTAZAPINE [Concomitant]
     Route: 048

REACTIONS (1)
  - TACHYCARDIA [None]
